FAERS Safety Report 4636292-3 (Version None)
Quarter: 2005Q2

REPORT INFORMATION
  Report Type: 
  Country: None (occurrence: None)
  Receive Date: 20050415
  Receipt Date: 20040702
  Transmission Date: 20051028
  Serious: No
  Sender: FDA-Public Use
  Company Number: US-BRISTOL-MYERS SQUIBB COMPANY-12632782

PATIENT
  Sex: Female

DRUGS (2)
  1. CARBOPLATIN [Suspect]
     Indication: OVARIAN CANCER
     Dosage: AUC OF 6
     Route: 042
  2. PACLITAXEL [Suspect]
     Indication: OVARIAN CANCER
     Route: 042

REACTIONS (2)
  - INJECTION SITE IRRITATION [None]
  - RASH GENERALISED [None]
